FAERS Safety Report 7704047-9 (Version None)
Quarter: 2011Q3

REPORT INFORMATION
  Report Type: 
  Country: None (occurrence: None)
  Receive Date: 20110823
  Receipt Date: 20110816
  Transmission Date: 20111222
  Serious: Yes (Hospitalization)
  Sender: FDA-Public Use
  Company Number: AU-B.I. PHARMACEUTICALS,INC./RIDGEFIELD-2011-AU-00769AU

PATIENT
  Sex: Male
  Weight: 85 kg

DRUGS (5)
  1. SPIRIVA [Concomitant]
  2. NOTEN [Concomitant]
  3. PRADAXA [Suspect]
     Indication: ATRIAL FIBRILLATION
     Dosage: 220 MG
     Dates: start: 20110625
  4. LIPITOR [Concomitant]
  5. COVERSYL PLUS [Concomitant]
     Dosage: 5/1.25 MG

REACTIONS (4)
  - OEDEMA PERIPHERAL [None]
  - CARDIAC FAILURE [None]
  - RENAL FAILURE ACUTE [None]
  - DYSPNOEA [None]
